FAERS Safety Report 4830771-1 (Version None)
Quarter: 2005Q4

REPORT INFORMATION
  Report Type: 
  Country: None (occurrence: None)
  Receive Date: 20051117
  Receipt Date: 20050902
  Transmission Date: 20060501
  Serious: Yes (Hospitalization)
  Sender: FDA-Public Use
  Company Number: US-MERCK-0509USA00449

PATIENT
  Age: 55 Year
  Sex: Female
  Weight: 73 kg

DRUGS (24)
  1. VIOXX [Suspect]
     Indication: ARTHRALGIA
     Route: 048
     Dates: start: 20000210, end: 20041001
  2. ALPRAZOLAM [Concomitant]
     Route: 065
  3. AMITRIPTYLINE HYDROCHLORIDE [Concomitant]
     Route: 065
  4. AMOXICILLIN [Concomitant]
     Route: 065
  5. ACETAMINOPHEN AND CODEINE [Concomitant]
     Route: 065
     Dates: start: 20020619, end: 20020901
  6. CELEXA [Concomitant]
     Route: 065
  7. CEPHALEXIN [Concomitant]
     Route: 065
  8. CIPRO [Concomitant]
     Route: 065
  9. CATAFLAM [Concomitant]
     Route: 065
     Dates: start: 19991124, end: 20000401
  10. EFFEXOR [Concomitant]
     Route: 065
  11. ESTRATEST [Concomitant]
     Route: 065
  12. ACETAMINOPHEN AND HYDROCODONE BITARTRATE [Concomitant]
     Route: 065
     Dates: start: 20021210, end: 20030101
  13. LAMICTAL [Concomitant]
     Route: 065
  14. LEVOTHYROXINE SODIUM [Concomitant]
     Route: 065
  15. LEVOXYL [Concomitant]
     Route: 065
  16. NITRO MACK [Concomitant]
     Route: 065
  17. OXAPROZIN [Concomitant]
     Route: 065
     Dates: start: 20021210, end: 20030201
  18. PIROXICAM [Concomitant]
     Route: 065
     Dates: start: 20030331, end: 20030401
  19. PROPRANOLOL HYDROCHLORIDE [Concomitant]
     Route: 065
  20. SEROQUEL [Concomitant]
     Route: 065
  21. ULTRACET [Concomitant]
     Route: 065
     Dates: start: 20021017, end: 20021101
  22. VEETIDS [Concomitant]
     Route: 065
  23. WARFARIN SODIUM [Concomitant]
     Route: 065
  24. ZYPREXA [Concomitant]
     Route: 065

REACTIONS (1)
  - PULMONARY EMBOLISM [None]
